FAERS Safety Report 21264220 (Version 1)
Quarter: 2022Q3

REPORT INFORMATION
  Report Type: Spontaneous
  Country: US (occurrence: US)
  Receive Date: 20220829
  Receipt Date: 20220829
  Transmission Date: 20221026
  Serious: Yes (Other)
  Sender: FDA-Public Use
  Company Number: US-ORPHANEU-2021003839

PATIENT
  Age: 29 Year
  Sex: Male
  Weight: 89.6 kg

DRUGS (15)
  1. DACTINOMYCIN [Suspect]
     Active Substance: DACTINOMYCIN
     Indication: Alveolar rhabdomyosarcoma
     Dosage: 0.05 MILLIGRAM/KILOGRAM OR PER PROTOCOL ON D1-5 OF C1 AND 3 (CYCLES 1-4)
     Route: 042
  2. DACTINOMYCIN [Suspect]
     Active Substance: DACTINOMYCIN
     Dosage: 0.05 MILLIGRAM/KILOGRAM OR PER PROTOCOL ON D1 OF C5,8,10 (CYCLES 5-10)
     Route: 042
  3. DACTINOMYCIN [Suspect]
     Active Substance: DACTINOMYCIN
     Dosage: 0.05 MILLIGRAM/KILOGRAM OR PER PROTOCOL ON D1 OF C12,14 (CYCLES 11-14)
     Route: 042
     Dates: end: 20210518
  4. CAMPTOSAR [Suspect]
     Active Substance: IRINOTECAN HYDROCHLORIDE
     Indication: Alveolar rhabdomyosarcoma
     Dosage: 50 MILLIGRAM/SQ. METER OR PER PROTOCOL ON D1-5 OF C2 AND 4 (CYCLES 1-4)
     Route: 042
  5. CAMPTOSAR [Suspect]
     Active Substance: IRINOTECAN HYDROCHLORIDE
     Dosage: 50 MILLIGRAM/SQ. METER OR PER PROTOCOL ON D1-5 OF C6,7,9 (CYCLES 5-10)
     Route: 042
  6. CAMPTOSAR [Suspect]
     Active Substance: IRINOTECAN HYDROCHLORIDE
     Dosage: 50 MILLIGRAM/SQ. METER OR PER PROTOCOL ON D1-5 OF C11,13 (CYCLES 11-14)
     Route: 042
     Dates: end: 20210430
  7. TEMSIROLIMUS [Suspect]
     Active Substance: TEMSIROLIMUS
     Indication: Alveolar rhabdomyosarcoma
     Dosage: 15 MILLIGRAM/SQ. METER OR PER PROTOCOL D1,8,15 (CYCLES 1-4)
     Route: 042
  8. TEMSIROLIMUS [Suspect]
     Active Substance: TEMSIROLIMUS
     Dosage: 15 MILLIGRAM/SQ. METER OR PER PROTOCOL ON D1,8,15 OF C8-10 (CYCLES 5-10)
     Route: 042
  9. TEMSIROLIMUS [Suspect]
     Active Substance: TEMSIROLIMUS
     Dosage: 15 MILLIGRAM/SQ. METER OR PER PROTOCOL D1,8,15 (CYCLES 11-14)
     Route: 042
     Dates: end: 20210525
  10. VINCRISTINE SULFATE [Suspect]
     Active Substance: VINCRISTINE SULFATE
     Indication: Alveolar rhabdomyosarcoma
     Dosage: 1.5 MILLIGRAM/SQ. METER OR PER PROTOCOL D1,8,15 (CYCLES 1-4)
     Route: 042
  11. VINCRISTINE SULFATE [Suspect]
     Active Substance: VINCRISTINE SULFATE
     Dosage: 1.5 MILLIGRAM/SQ. METER OR PER PROTOCOL ON D1 OF C5 AND 10 AND D1,8 OF C6,7,9 AND D1,8,15 OF C8 (CYC
     Route: 042
  12. VINCRISTINE SULFATE [Suspect]
     Active Substance: VINCRISTINE SULFATE
     Dosage: 1.5 MILLIGRAM/SQ. METER OR PER PROTOCOL D1,8,15 OF C11 AND D1 OF C12,14 AND D1,8 OF C13 (CYCLES 11-1
     Route: 042
     Dates: end: 20210518
  13. CYCLOPHOSPHAMIDE [Suspect]
     Active Substance: CYCLOPHOSPHAMIDE
     Indication: Alveolar rhabdomyosarcoma
     Dosage: 1200 MILLIGRAM/SQ. METER OR PER PROTOCOL ON D1 OF C1 AND 3 (CYCLES 1-4)
     Route: 042
  14. CYCLOPHOSPHAMIDE [Suspect]
     Active Substance: CYCLOPHOSPHAMIDE
     Dosage: 1200 MILLIGRAM/SQ. METER OR PER PROTOCOL ON D1 OF C5,8,10 (CYCLES 5-10)
     Route: 042
  15. CYCLOPHOSPHAMIDE [Suspect]
     Active Substance: CYCLOPHOSPHAMIDE
     Dosage: 1200 MILLIGRAM/SQ. METER OR PER PROTOCOL ON D1 OF C12,14 (CYCLES 11-14)
     Route: 042
     Dates: end: 20210518

REACTIONS (5)
  - Stomatitis [Recovered/Resolved]
  - Decreased appetite [Unknown]
  - Nausea [Unknown]
  - Constipation [Unknown]
  - Malaise [Unknown]

NARRATIVE: CASE EVENT DATE: 20210601
